FAERS Safety Report 9013520 (Version 1)
Quarter: 2013Q1

REPORT INFORMATION
  Report Type: Spontaneous
  Country: US (occurrence: US)
  Receive Date: 20130115
  Receipt Date: 20130115
  Transmission Date: 20140127
  Serious: Yes (Hospitalization)
  Sender: FDA-Public Use
  Company Number: US-RANBAXY-2013US-63969

PATIENT
  Age: 29 Year
  Sex: Female

DRUGS (2)
  1. GABAPENTIN [Suspect]
     Indication: MOVEMENT DISORDER
     Dosage: UNK
     Route: 048
  2. BUPROPION [Suspect]
     Indication: PRODUCT USED FOR UNKNOWN INDICATION
     Dosage: UNK
     Route: 065

REACTIONS (8)
  - Electroencephalogram abnormal [Recovered/Resolved]
  - Grand mal convulsion [Recovered/Resolved]
  - Sinus tachycardia [Unknown]
  - Electrocardiogram QT prolonged [Unknown]
  - Cardiogenic shock [Unknown]
  - Overdose [Unknown]
  - Metabolic acidosis [Unknown]
  - Hypotension [Recovering/Resolving]
